FAERS Safety Report 4841783-6 (Version None)
Quarter: 2005Q4

REPORT INFORMATION
  Report Type: 
  Country: None (occurrence: None)
  Receive Date: 20051130
  Receipt Date: 20051120
  Transmission Date: 20060501
  Serious: Yes (Other)
  Sender: FDA-Public Use
  Company Number: PHBS2005ES17132

PATIENT
  Age: 68 Year
  Sex: Male

DRUGS (3)
  1. ZOMETA [Suspect]
     Indication: LUNG NEOPLASM MALIGNANT
     Route: 065
  2. PROCRIN [Concomitant]
  3. HORMONES [Concomitant]

REACTIONS (2)
  - DENTAL TREATMENT [None]
  - OSTEONECROSIS [None]
